FAERS Safety Report 8435409-2 (Version None)
Quarter: 2012Q2

REPORT INFORMATION
  Report Type: 
  Country: None (occurrence: None)
  Receive Date: 20120614
  Receipt Date: 20120612
  Transmission Date: 20120825
  Serious: Yes (Other)
  Sender: FDA-Public Use
  Company Number: PHHY2012FR050712

PATIENT
  Sex: Female
  Weight: 72 kg

DRUGS (2)
  1. ZOLEDRONOC ACID [Suspect]
     Indication: OSTEOPOROSIS
     Dosage: 5 MG, UNK
     Route: 042
     Dates: start: 20120607
  2. FIXICAL VITAMINE D3 [Concomitant]
     Dosage: 1 DF, UNK

REACTIONS (3)
  - VIRAL INFECTION [None]
  - PAIN [None]
  - ARTHRALGIA [None]
